FAERS Safety Report 7410616-6 (Version None)
Quarter: 2011Q1

REPORT INFORMATION
  Report Type: 
  Country: None (occurrence: None)
  Receive Date: 20110302
  Receipt Date: 20110117
  Transmission Date: 20110831
  Serious: No
  Sender: FDA-Public Use
  Company Number: 025727

PATIENT
  Sex: Female

DRUGS (1)
  1. CIMZIA [Suspect]
     Indication: CROHN'S DISEASE
     Dosage: SUBCUTANEOUS
     Route: 058

REACTIONS (5)
  - DRUG INEFFECTIVE [None]
  - PAIN [None]
  - NAUSEA [None]
  - GASTROINTESTINAL OBSTRUCTION [None]
  - FLATULENCE [None]
